FAERS Safety Report 23149336 (Version 1)
Quarter: 2023Q4

REPORT INFORMATION
  Report Type: Spontaneous
  Country: CA (occurrence: CA)
  Receive Date: 20231106
  Receipt Date: 20231106
  Transmission Date: 20240110
  Serious: Yes (Hospitalization, Other)
  Sender: FDA-Public Use
  Company Number: CA-ABBVIE-5479785

PATIENT

DRUGS (2)
  1. URSODIOL [Suspect]
     Active Substance: URSODIOL
     Indication: Maternal exposure timing unspecified
     Route: 064
  2. URSODIOL [Suspect]
     Active Substance: URSODIOL
     Indication: Maternal exposure timing unspecified
     Route: 063

REACTIONS (1)
  - Exposure via breast milk [Unknown]
